FAERS Safety Report 5881658-7 (Version None)
Quarter: 2008Q3

REPORT INFORMATION
  Report Type: 
  Country: None (occurrence: None)
  Receive Date: 20080912
  Receipt Date: 20080708
  Transmission Date: 20090109
  Serious: No
  Sender: FDA-Public Use
  Company Number: US-ABBOTT-08P-163-0461541-00

PATIENT
  Sex: Female
  Weight: 102.15 kg

DRUGS (7)
  1. HUMIRA [Suspect]
     Indication: CROHN'S DISEASE
     Route: 058
     Dates: start: 20080707, end: 20080707
  2. HUMIRA [Suspect]
     Route: 058
     Dates: start: 20080708
  3. SYNTHROID [Concomitant]
     Indication: HYPOTHYROIDISM
     Route: 048
  4. HYDROCHLOROTHIAZIDE [Concomitant]
     Indication: HYPERTENSION
     Route: 048
  5. ENALAPRIL MALEATE [Concomitant]
     Indication: HYPERTENSION
     Route: 048
  6. PREDNISONE TAB [Concomitant]
     Indication: CROHN'S DISEASE
     Route: 048
     Dates: start: 20080701
  7. TYLOX [Concomitant]
     Indication: PAIN
     Dosage: 5/325MG 1-2 TABS EVERY 4 HOURS
     Route: 048
     Dates: start: 20070101

REACTIONS (1)
  - INJECTION SITE PAIN [None]
